FAERS Safety Report 6156797-6 (Version None)
Quarter: 2009Q2

REPORT INFORMATION
  Report Type: 
  Country: None (occurrence: None)
  Receive Date: 20090413
  Receipt Date: 20081114
  Transmission Date: 20091009
  Serious: No
  Sender: FDA-Public Use
  Company Number: 2008BM000219

PATIENT
  Age: 9 Year
  Sex: Male
  Weight: 35.3806 kg

DRUGS (2)
  1. KUVAN [Suspect]
     Indication: PHENYLKETONURIA
     Dosage: 700 MG;QD;PO
     Route: 048
     Dates: start: 20081001
  2. L CARNITIN [Concomitant]

REACTIONS (1)
  - HEADACHE [None]
